FAERS Safety Report 4388582-X (Version None)
Quarter: 2004Q2

REPORT INFORMATION
  Report Type: 
  Country: None (occurrence: None)
  Receive Date: 20040624
  Receipt Date: 20040615
  Transmission Date: 20050107
  Serious: Yes (Hospitalization)
  Sender: FDA-Public Use
  Company Number: 2004040862

PATIENT
  Age: 29 Year
  Sex: Male

DRUGS (4)
  1. NICOTINE (NICOTINE) (NICOTINE) [Suspect]
     Indication: SMOKING CESSATION THERAPY
     Dosage: 21 MG QD, TRANSDERMAL
     Route: 062
     Dates: start: 20040221, end: 20040222
  2. NICORETTE [Suspect]
     Indication: SMOKING CESSATION THERAPY
     Dosage: 2MG 8 TIME DAILY, ORAL
     Route: 048
     Dates: start: 20040221, end: 20040222
  3. ALPRAZOLAM [Concomitant]
  4. PAROXETINE HCL [Concomitant]

REACTIONS (1)
  - GASTRIC ULCER [None]
